FAERS Safety Report 25707475 (Version 1)
Quarter: 2025Q3

REPORT INFORMATION
  Report Type: Spontaneous
  Country: US (occurrence: US)
  Receive Date: 20250820
  Receipt Date: 20250820
  Transmission Date: 20251020
  Serious: No
  Sender: ASTELLAS
  Company Number: US-ASTELLAS-2025-AER-015860

PATIENT
  Sex: Male

DRUGS (1)
  1. XTANDI [Suspect]
     Active Substance: ENZALUTAMIDE
     Indication: Prostate cancer stage IV
     Dosage: 4 CAPSULES OF 40MG, ONCE DAILY
     Route: 065
     Dates: start: 20240127

REACTIONS (6)
  - Weight decreased [Unknown]
  - Hot flush [Unknown]
  - Mood swings [Unknown]
  - Emotional disorder [Unknown]
  - Aggression [Unknown]
  - Crying [Unknown]
